FAERS Safety Report 13893727 (Version 1)
Quarter: 2017Q3

REPORT INFORMATION
  Report Type: Spontaneous
  Country: US (occurrence: US)
  Receive Date: 20170822
  Receipt Date: 20170822
  Transmission Date: 20171127
  Serious: Yes (Other)
  Sender: FDA-Public Use
  Company Number: PHHY2017US122751

PATIENT
  Sex: Male

DRUGS (2)
  1. TELAPREVIR [Suspect]
     Active Substance: TELAPREVIR
     Indication: HEPATITIS C
     Dosage: UNK
     Route: 065
  2. RIBAVIRIN. [Suspect]
     Active Substance: RIBAVIRIN
     Indication: HEPATITIS C
     Dosage: UNK
     Route: 065

REACTIONS (13)
  - Fatigue [Unknown]
  - Hepatitis C [Unknown]
  - Decreased appetite [Unknown]
  - Insomnia [Unknown]
  - Pancytopenia [Unknown]
  - Dyspnoea [Unknown]
  - Porphyria non-acute [Unknown]
  - Balance disorder [Unknown]
  - Dizziness [Unknown]
  - Drug interaction [Unknown]
  - Disease recurrence [Unknown]
  - Headache [Unknown]
  - Blister [Unknown]
